FAERS Safety Report 9240177 (Version 1)
Quarter: 2013Q2

REPORT INFORMATION
  Report Type: Report from Study
  Country: CA (occurrence: CA)
  Receive Date: 20130418
  Receipt Date: 20130418
  Transmission Date: 20140414
  Serious: No
  Sender: FDA-Public Use
  Company Number: CA-UCBSA-074484

PATIENT
  Age: 62 Year
  Sex: Female

DRUGS (14)
  1. CIMZIA [Suspect]
     Indication: RHEUMATOID ARTHRITIS
     Route: 058
     Dates: start: 20130121, end: 2013
  2. CIMZIA [Suspect]
     Indication: RHEUMATOID ARTHRITIS
     Route: 058
     Dates: start: 20121211, end: 20130110
  3. FOLIC ACID [Concomitant]
     Indication: VITAMIN SUPPLEMENTATION
     Route: 048
     Dates: start: 201207
  4. METHOTREXATE [Concomitant]
     Indication: RHEUMATOID ARTHRITIS
     Route: 058
     Dates: start: 201207
  5. PREDNISONE [Concomitant]
     Indication: RHEUMATOID ARTHRITIS
     Route: 048
     Dates: start: 201201
  6. AMILODIPINE [Concomitant]
     Indication: HYPERTENSION
     Route: 048
  7. CILAZAPRILL [Concomitant]
     Indication: HYPERTENSION
     Route: 048
  8. SYNTHROID [Concomitant]
     Indication: HYPOTHYROIDISM
     Route: 048
  9. NIZATIDINE [Concomitant]
     Indication: BARRETT^S OESOPHAGUS
     Route: 048
  10. GABAPENTIN [Concomitant]
     Indication: FIBROMYALGIA
     Route: 048
  11. CELEBREX [Concomitant]
     Indication: FIBROMYALGIA
     Route: 048
  12. TECTA [Concomitant]
     Route: 048
  13. VENTOLIN [Concomitant]
     Indication: ASTHMA
     Dosage: DOSE PER INTAKE: I-II. ONCE IN 4 HOURS INHALATION
  14. FOSAVANCE [Concomitant]
     Indication: OSTEOPOROSIS
     Dosage: DOSE: 70/5600 MG
     Route: 048

REACTIONS (2)
  - Upper respiratory tract infection [Recovered/Resolved]
  - Hypoaesthesia [Unknown]
